FAERS Safety Report 6298999-4 (Version None)
Quarter: 2009Q3

REPORT INFORMATION
  Report Type: 
  Country: None (occurrence: None)
  Receive Date: 20090806
  Receipt Date: 20090727
  Transmission Date: 20100115
  Serious: Yes (Hospitalization)
  Sender: FDA-Public Use
  Company Number: PHHY2009FR29504

PATIENT
  Age: 76 Year
  Sex: Female

DRUGS (2)
  1. TEGRETOL-XR [Suspect]
     Indication: EPILEPSY
     Dosage: 200 MG, TID
     Route: 048
  2. TEGRETOL-XR [Suspect]
     Dosage: 400 MG
     Route: 048

REACTIONS (2)
  - DRUG ADMINISTRATION ERROR [None]
  - OVERDOSE [None]
